FAERS Safety Report 5402787-8 (Version None)
Quarter: 2007Q3

REPORT INFORMATION
  Report Type: 
  Country: None (occurrence: None)
  Receive Date: 20070730
  Receipt Date: 20070730
  Transmission Date: 20080115
  Serious: Yes (Death)
  Sender: FDA-Public Use
  Company Number: None

PATIENT
  Age: 64 Year
  Sex: Female
  Weight: 58.0604 kg

DRUGS (2)
  1. EFFEXOR XR [Suspect]
     Indication: UNEVALUABLE EVENT
     Dosage: 75 MG 1/DAY
     Dates: start: 20060801, end: 20060819
  2. BONIVA [Suspect]
     Indication: UNEVALUABLE EVENT
     Dosage: 150 MG  1/MO.
     Dates: start: 20060715, end: 20060819

REACTIONS (1)
  - DRUG INEFFECTIVE [None]
